FAERS Safety Report 4628999-9 (Version None)
Quarter: 2005Q2

REPORT INFORMATION
  Report Type: 
  Country: None (occurrence: None)
  Receive Date: 20050405
  Receipt Date: 20050405
  Transmission Date: 20051028
  Serious: Yes (Other)
  Sender: FDA-Public Use
  Company Number: None

PATIENT
  Sex: Male
  Weight: 99.7913 kg

DRUGS (3)
  1. CLARITIN [Suspect]
     Indication: MULTIPLE ALLERGIES
     Dosage: ONE A DAY ORAL
     Route: 048
     Dates: start: 19980301, end: 19980430
  2. CLARITIN [Suspect]
     Indication: MULTIPLE ALLERGIES
     Dosage: ONE A DAY ORAL
     Route: 048
     Dates: start: 20040301, end: 20040430
  3. .. [Suspect]

REACTIONS (1)
  - HYPOTHYROIDISM [None]
